FAERS Safety Report 15367637 (Version 1)
Quarter: 2018Q3

REPORT INFORMATION
  Report Type: Spontaneous
  Country: US (occurrence: US)
  Receive Date: 20180910
  Receipt Date: 20180910
  Transmission Date: 20181010
  Serious: No
  Sender: FDA-Public Use
  Company Number: US-JNJFOC-20180834057

PATIENT
  Sex: Male
  Weight: 72.12 kg

DRUGS (2)
  1. IMODIUM MULTI?SYMPTOM RELIEF [Suspect]
     Active Substance: DIMETHICONE\LOPERAMIDE HYDROCHLORIDE
     Indication: DIARRHOEA
     Dosage: 2 TABLETS FIRST TIME AND OTHER TIMES JUST 1 TABLE TWICE A DAY
     Route: 048
     Dates: start: 20180818, end: 20180819
  2. IMODIUM MULTI?SYMPTOM RELIEF [Suspect]
     Active Substance: DIMETHICONE\LOPERAMIDE HYDROCHLORIDE
     Indication: MUSCLE SPASMS
     Dosage: 2 TABLETS FIRST TIME AND OTHER TIMES JUST 1 TABLE TWICE A DAY
     Route: 048
     Dates: start: 20180818, end: 20180819

REACTIONS (2)
  - Drug ineffective [Unknown]
  - Muscle spasms [Unknown]
